FAERS Safety Report 9726116 (Version 2)
Quarter: 2013Q4

REPORT INFORMATION
  Report Type: Spontaneous
  Country: US (occurrence: US)
  Receive Date: 20131203
  Receipt Date: 20131203
  Transmission Date: 20140711
  Serious: Yes (Death)
  Sender: FDA-Public Use
  Company Number: US-CUBIST PHARMACEUTICAL, INC.-2011S1000358

PATIENT
  Sex: 0

DRUGS (5)
  1. CUBICIN [Suspect]
     Indication: EXTRADURAL ABSCESS
     Dosage: UNK UNK, UNK
     Route: 065
  2. CUBICIN [Suspect]
     Indication: OFF LABEL USE
  3. SYNERCID [Concomitant]
     Indication: PRODUCT USED FOR UNKNOWN INDICATION
     Dosage: UNK UNK, UNK
     Route: 065
  4. VANCOMYCIN [Concomitant]
     Indication: PRODUCT USED FOR UNKNOWN INDICATION
     Dosage: UNK UNK, UNK
     Route: 065
  5. RIFAMPICIN [Concomitant]
     Indication: PRODUCT USED FOR UNKNOWN INDICATION
     Dosage: UNK UNK, UNK
     Route: 065

REACTIONS (2)
  - Clostridium difficile infection [Fatal]
  - Antimicrobial susceptibility test resistant [Unknown]
